APPROVED DRUG PRODUCT: SILDENAFIL CITRATE
Active Ingredient: SILDENAFIL CITRATE
Strength: EQ 50MG BASE
Dosage Form/Route: TABLET;ORAL
Application: A206401 | Product #002 | TE Code: AB
Applicant: AJANTA PHARMA LTD
Approved: Oct 12, 2018 | RLD: No | RS: No | Type: RX